FAERS Safety Report 15451461 (Version 1)
Quarter: 2018Q4

REPORT INFORMATION
  Report Type: Spontaneous
  Country: DE (occurrence: DE)
  Receive Date: 20181001
  Receipt Date: 20181001
  Transmission Date: 20190204
  Serious: Yes (Other)
  Sender: FDA-Public Use
  Company Number: DE-AUROBINDO-AUR-APL-2012-01470

PATIENT
  Age: 80 Year
  Sex: Female

DRUGS (25)
  1. LITHIUM APOGEPHA [Suspect]
     Active Substance: LITHIUM CARBONATE
     Dosage: 675 MILLIGRAM, ONCE A DAY
     Route: 048
     Dates: start: 20110922
  2. LISINOPRIL. [Concomitant]
     Active Substance: LISINOPRIL
     Indication: PRODUCT USED FOR UNKNOWN INDICATION
     Dosage: 20 MILLIGRAM, ONCE A DAY
     Route: 048
     Dates: start: 20110722, end: 20110810
  3. ALENDRONATE SODIUM. [Concomitant]
     Active Substance: ALENDRONATE SODIUM
     Indication: PRODUCT USED FOR UNKNOWN INDICATION
     Dosage: 70 MILLIGRAM, ONCE A DAY
     Route: 048
  4. QUETIAPINE. [Suspect]
     Active Substance: QUETIAPINE
     Indication: PRODUCT USED FOR UNKNOWN INDICATION
     Dosage: 25 MILLIGRAM, ONCE A DAY
     Route: 048
     Dates: start: 20110822, end: 20110825
  5. MACROGOL [Concomitant]
     Active Substance: POLYETHYLENE GLYCOLS
     Indication: PRODUCT USED FOR UNKNOWN INDICATION
     Dosage: 1 DOSAGE FORM, ONCE A DAY
     Route: 065
  6. LISINOPRIL. [Concomitant]
     Active Substance: LISINOPRIL
     Dosage: 5 MILLIGRAM, ONCE A DAY
     Route: 048
     Dates: start: 20110827, end: 20111012
  7. AGOMELATIN FILM COATED TABLETS [Suspect]
     Active Substance: AGOMELATINE
     Indication: PRODUCT USED FOR UNKNOWN INDICATION
     Dosage: 25 MILLIGRAM, ONCE A DAY
     Route: 048
     Dates: start: 20110811, end: 20110817
  8. HALOPERIDOL. [Suspect]
     Active Substance: HALOPERIDOL
     Dosage: 1 MILLIGRAM, ONCE A DAY
     Route: 048
     Dates: start: 20110913, end: 20110914
  9. LITHIUM APOGEPHA [Suspect]
     Active Substance: LITHIUM CARBONATE
     Dosage: 450 MILLIGRAM, ONCE A DAY
     Route: 048
     Dates: start: 20110914, end: 20110921
  10. DOMINAL                            /00002701/ [Suspect]
     Active Substance: ASPIRIN
     Dosage: 80 MILLIGRAM, ONCE A DAY
     Route: 048
     Dates: start: 20110826, end: 20110904
  11. QUETIAPINE. [Suspect]
     Active Substance: QUETIAPINE
     Dosage: 50 MILLIGRAM, ONCE A DAY
     Route: 048
     Dates: start: 20110826, end: 20110829
  12. SERTRALINE [Suspect]
     Active Substance: SERTRALINE HYDROCHLORIDE
     Indication: PRODUCT USED FOR UNKNOWN INDICATION
     Dosage: 50 MILLIGRAM, ONCE A DAY
     Route: 048
     Dates: start: 20110915, end: 20110919
  13. QUETIAPINE. [Suspect]
     Active Substance: QUETIAPINE
     Dosage: 175 MILLIGRAM, ONCE A DAY
     Route: 048
     Dates: start: 20110902, end: 20110905
  14. QUETIAPINE. [Suspect]
     Active Substance: QUETIAPINE
     Dosage: 250 MILLIGRAM, ONCE A DAY
     Route: 048
     Dates: start: 20110912
  15. AGOMELATIN FILM COATED TABLETS [Suspect]
     Active Substance: AGOMELATINE
     Dosage: 50 MILLIGRAM, ONCE A DAY
     Route: 048
     Dates: start: 20110818, end: 20110914
  16. LITHIUM APOGEPHA [Suspect]
     Active Substance: LITHIUM CARBONATE
     Indication: PRODUCT USED FOR UNKNOWN INDICATION
     Dosage: 450 MILLIGRAM, ONCE A DAY
     Route: 048
     Dates: start: 20110725, end: 20110725
  17. DOMINAL                            /00002701/ [Suspect]
     Active Substance: ASPIRIN
     Indication: PRODUCT USED FOR UNKNOWN INDICATION
     Dosage: 120 MILLIGRAM, ONCE A DAY
     Route: 048
     Dates: start: 20110722, end: 20110825
  18. SERTRALINE [Suspect]
     Active Substance: SERTRALINE HYDROCHLORIDE
     Dosage: 100 MILLIGRAM, ONCE A DAY
     Route: 048
     Dates: start: 20110920, end: 20120101
  19. QUETIAPINE. [Suspect]
     Active Substance: QUETIAPINE
     Dosage: 125 MILLIGRAM, ONCE A DAY
     Route: 048
     Dates: start: 20110830, end: 20110901
  20. QUETIAPINE. [Suspect]
     Active Substance: QUETIAPINE
     Dosage: 225 MILLIGRAM, ONCE A DAY
     Route: 048
     Dates: start: 20110906, end: 20110911
  21. DOMINAL                            /00002701/ [Suspect]
     Active Substance: ASPIRIN
     Dosage: 120 MILLIGRAM, ONCE A DAY
     Route: 048
     Dates: start: 20110905, end: 20110914
  22. PHENPRO [Concomitant]
     Active Substance: PHENPROCOUMON
     Indication: PRODUCT USED FOR UNKNOWN INDICATION
     Dosage: 1.5 MILLIGRAM, ONCE A DAY
     Route: 048
     Dates: start: 20110722, end: 20111012
  23. HALOPERIDOL. [Suspect]
     Active Substance: HALOPERIDOL
     Indication: PRODUCT USED FOR UNKNOWN INDICATION
     Dosage: 0.5 MILLIGRAM, ONCE A DAY
     Route: 048
     Dates: start: 20110906, end: 20110912
  24. LITHIUM APOGEPHA [Suspect]
     Active Substance: LITHIUM CARBONATE
     Dosage: 225 MILLIGRAM, ONCE A DAY
     Route: 048
     Dates: start: 20110726, end: 20110811
  25. LISINOPRIL. [Concomitant]
     Active Substance: LISINOPRIL
     Dosage: 10 MILLIGRAM, ONCE A DAY
     Route: 048
     Dates: start: 20110811, end: 20110826

REACTIONS (3)
  - Gait disturbance [Recovered/Resolved]
  - Salivary hypersecretion [Recovered/Resolved]
  - Dysphagia [Recovered/Resolved]

NARRATIVE: CASE EVENT DATE: 20110914
